FAERS Safety Report 8977404 (Version 1)
Quarter: 2012Q4

REPORT INFORMATION
  Report Type: 
  Country: IT (occurrence: IT)
  Receive Date: 20121220
  Receipt Date: 20121220
  Transmission Date: 20130627
  Serious: Yes (Hospitalization)
  Sender: FDA-Public Use
  Company Number: IT-WATSON-2012-22165

PATIENT
  Age: 63 Year
  Sex: Female

DRUGS (4)
  1. FOLIC ACID [Suspect]
     Indication: CHEMOTHERAPY
     Dosage: 1 DF, single
     Route: 065
     Dates: start: 20120921
  2. IRINOTECAN HYDROCHLORIDE [Suspect]
     Indication: CHEMOTHERAPY
     Dosage: 1 DF, single
     Route: 065
     Dates: start: 20120921
  3. BEVACIZUMAB [Suspect]
     Indication: CHEMOTHERAPY
     Dosage: 1 DF, single
     Route: 065
     Dates: start: 20120921
  4. FLUOROURACIL [Suspect]
     Indication: CHEMOTHERAPY
     Dosage: 1 DF, single
     Route: 065
     Dates: start: 20120921

REACTIONS (3)
  - Abdominal pain upper [Recovering/Resolving]
  - Nausea [Recovering/Resolving]
  - Vomiting [Recovering/Resolving]
